FAERS Safety Report 6773175-7 (Version None)
Quarter: 2010Q2

REPORT INFORMATION
  Report Type: 
  Country: None (occurrence: None)
  Receive Date: 20100520
  Receipt Date: 20090310
  Transmission Date: 20101027
  Serious: Yes (Other)
  Sender: FDA-Public Use
  Company Number: 2009181213

PATIENT
  Age: 64 Year
  Sex: Female
  Weight: 54 kg

DRUGS (8)
  1. PROVERA [Suspect]
     Indication: MENOPAUSE
     Dosage: ORAL
     Route: 048
     Dates: start: 19870223, end: 19900712
  2. PREMARIN [Suspect]
     Indication: MENOPAUSE
     Dates: start: 19870223, end: 19970402
  3. AYGESTIN [Suspect]
     Indication: MENOPAUSE
     Dates: start: 19900712, end: 19970402
  4. BUSPAR [Concomitant]
  5. DESYREL [Concomitant]
  6. PROZAC [Concomitant]
  7. RESTORIL [Concomitant]
  8. TRAZODONE HCL [Concomitant]

REACTIONS (1)
  - BREAST CANCER FEMALE [None]
